FAERS Safety Report 23232959 (Version 1)
Quarter: 2023Q4

REPORT INFORMATION
  Report Type: Report from Study
  Country: JP (occurrence: JP)
  Receive Date: 20231128
  Receipt Date: 20231128
  Transmission Date: 20240110
  Serious: Yes (Death, Other)
  Sender: FDA-Public Use
  Company Number: JP-TAKEDA-2019TJP002875

PATIENT
  Age: 81 Year
  Sex: Female
  Weight: 53.4 kg

DRUGS (1)
  1. PANITUMUMAB [Suspect]
     Active Substance: PANITUMUMAB
     Indication: Colon cancer
     Dosage: 300 MILLIGRAM, Q2WK
     Route: 042
     Dates: start: 20180125, end: 20180125

REACTIONS (13)
  - Gamma-glutamyltransferase increased [Unknown]
  - Colon cancer [Fatal]
  - Alanine aminotransferase increased [Unknown]
  - Aspartate aminotransferase increased [Unknown]
  - Blood alkaline phosphatase abnormal [Unknown]
  - Hypoalbuminaemia [Unknown]
  - Hyperkalaemia [Unknown]
  - Hypomagnesaemia [Unknown]
  - Hypocalcaemia [Unknown]
  - Fatigue [Unknown]
  - Dermatitis acneiform [Unknown]
  - Decreased appetite [Unknown]
  - Nausea [Unknown]

NARRATIVE: CASE EVENT DATE: 20180208
